FAERS Safety Report 11608134 (Version 1)
Quarter: 2015Q4

REPORT INFORMATION
  Report Type: Spontaneous
  Country: US (occurrence: US)
  Receive Date: 20151007
  Receipt Date: 20151007
  Transmission Date: 20160304
  Serious: Yes (Other)
  Sender: FDA-Public Use
  Company Number: US-TEVA-598120USA

PATIENT
  Sex: Female
  Weight: 68 kg

DRUGS (3)
  1. LYRICA [Suspect]
     Active Substance: PREGABALIN
     Indication: PAIN IN JAW
     Dosage: 100 MILLIGRAM DAILY;
     Route: 048
  2. LOSARTAN. [Suspect]
     Active Substance: LOSARTAN
     Indication: BLOOD PRESSURE MEASUREMENT
     Dosage: 50 MILLIGRAM DAILY;
     Route: 048
  3. ACETAMINOPHEN. [Concomitant]
     Active Substance: ACETAMINOPHEN

REACTIONS (6)
  - Hypotension [Unknown]
  - Insomnia [Unknown]
  - Blood pressure increased [Unknown]
  - Fall [Unknown]
  - Seizure [Unknown]
  - Fatigue [Unknown]

NARRATIVE: CASE EVENT DATE: 2015
